FAERS Safety Report 6753999-2 (Version None)
Quarter: 2010Q2

REPORT INFORMATION
  Report Type: 
  Country: None (occurrence: None)
  Receive Date: 20100603
  Receipt Date: 20100526
  Transmission Date: 20101027
  Serious: Yes (Hospitalization)
  Sender: FDA-Public Use
  Company Number: B0645036A

PATIENT
  Sex: Male

DRUGS (2)
  1. EPZICOM [Suspect]
     Indication: DRUG USE FOR UNKNOWN INDICATION
     Dosage: 1IUAX PER DAY
     Route: 048
     Dates: start: 20100223, end: 20100305
  2. STOCRIN [Concomitant]
     Indication: DRUG USE FOR UNKNOWN INDICATION
     Dosage: 600MG PER DAY
     Route: 048
     Dates: start: 20100223, end: 20100309

REACTIONS (6)
  - BLISTER [None]
  - ECZEMA [None]
  - ERYTHEMA [None]
  - PERIVASCULAR DERMATITIS [None]
  - PYREXIA [None]
  - TOXIC EPIDERMAL NECROLYSIS [None]
